FAERS Safety Report 5093286-4 (Version None)
Quarter: 2006Q3

REPORT INFORMATION
  Report Type: 
  Country: None (occurrence: None)
  Receive Date: 20060829
  Receipt Date: 20060829
  Transmission Date: 20061208
  Serious: Yes (Hospitalization)
  Sender: FDA-Public Use
  Company Number: None

PATIENT
  Sex: Male
  Weight: 103 kg

DRUGS (1)
  1. COUMADIN [Suspect]
     Indication: ATRIAL FIBRILLATION
     Dosage: SEE IMAGE
     Route: 048

REACTIONS (5)
  - HAEMOPTYSIS [None]
  - LOBAR PNEUMONIA [None]
  - PRODUCTIVE COUGH [None]
  - SELF-MEDICATION [None]
  - SPUTUM DISCOLOURED [None]
